FAERS Safety Report 10370236 (Version 1)
Quarter: 2014Q3

REPORT INFORMATION
  Report Type: Spontaneous
  Country: US (occurrence: None)
  Receive Date: 20140806
  Receipt Date: 20140806
  Transmission Date: 20150326
  Serious: No
  Sender: FDA-Public Use
  Company Number: None

PATIENT
  Age: 45 Year
  Sex: Female
  Weight: 85.73 kg

DRUGS (6)
  1. RISPERDAL [Suspect]
     Active Substance: RISPERIDONE
     Dosage: 4 MG (2 PILLS OF 2 MG) ?QHS/BEDTIME?ORAL
     Route: 048
     Dates: start: 20140724, end: 20140804
  2. ALBUTEROL HFA INHALER [Concomitant]
  3. KLONOPIN [Concomitant]
     Active Substance: CLONAZEPAM
  4. GEODON [Concomitant]
     Active Substance: ZIPRASIDONE HYDROCHLORIDE\ZIPRASIDONE MESYLATE
  5. DEPAKOTE [Concomitant]
     Active Substance: DIVALPROEX SODIUM
  6. TRIFLUOPERAZINE [Concomitant]
     Active Substance: TRIFLUOPERAZINE\TRIFLUOPERAZINE HYDROCHLORIDE

REACTIONS (1)
  - Blood prolactin increased [None]

NARRATIVE: CASE EVENT DATE: 20140731
